FAERS Safety Report 9822836 (Version 1)
Quarter: 2014Q1

REPORT INFORMATION
  Report Type: Spontaneous
  Country: US (occurrence: US)
  Receive Date: 20140116
  Receipt Date: 20140116
  Transmission Date: 20141002
  Serious: Yes (Hospitalization, Other)
  Sender: FDA-Public Use
  Company Number: US-ELI_LILLY_AND_COMPANY-US201401002808

PATIENT
  Sex: Female

DRUGS (5)
  1. FORTEO [Suspect]
     Indication: OSTEOPOROSIS
     Dosage: UNK, QD
     Route: 065
     Dates: start: 200806, end: 200811
  2. FORTEO [Suspect]
     Dosage: UNK, QD
     Route: 065
     Dates: start: 201212
  3. LEVOTHYROXIN [Concomitant]
     Dosage: 50 UG, QD
  4. ASPIRIN [Concomitant]
  5. TYLENOL                            /00020001/ [Concomitant]
     Indication: PAIN
     Dosage: UNK, PRN

REACTIONS (3)
  - Aortic valve incompetence [Unknown]
  - Femur fracture [Unknown]
  - Drug dose omission [Unknown]
